FAERS Safety Report 23045433 (Version 4)
Quarter: 2024Q2

REPORT INFORMATION
  Report Type: Report from Study
  Country: CA (occurrence: CA)
  Receive Date: 20231009
  Receipt Date: 20240430
  Transmission Date: 20240716
  Serious: Yes (Hospitalization, Other)
  Sender: FDA-Public Use
  Company Number: CA-002147023-NVSC2023CA028443

PATIENT
  Age: 23 Year
  Sex: Female

DRUGS (2)
  1. HYRIMOZ [Suspect]
     Active Substance: ADALIMUMAB-ADAZ
     Dosage: 160 MG, WEEK 0, 80MG WEEK 2, THEN 40MG Q 2 WEEKS;EVERY TWO WEEKS
     Route: 058
     Dates: start: 20221124
  2. HYRIMOZ [Suspect]
     Active Substance: ADALIMUMAB-ADAZ
     Indication: Crohn^s disease
     Dosage: 40MG S/C WEEKLY;WEEKLY
     Route: 058
     Dates: start: 20221124

REACTIONS (9)
  - Small intestinal obstruction [Unknown]
  - Crohn^s disease [Unknown]
  - Tooth infection [Unknown]
  - Bowel obstruction surgery [Unknown]
  - Surgery [Unknown]
  - Intestinal resection [Unknown]
  - Postoperative wound infection [Unknown]
  - Wound infection [Unknown]
  - Off label use [Unknown]

NARRATIVE: CASE EVENT DATE: 20240401
